FAERS Safety Report 23019103 (Version 1)
Quarter: 2023Q4

REPORT INFORMATION
  Report Type: Report from Study
  Country: US (occurrence: US)
  Receive Date: 20231003
  Receipt Date: 20231003
  Transmission Date: 20240110
  Serious: Yes (Other)
  Sender: FDA-Public Use
  Company Number: US-NOVOPROD-1121686

PATIENT
  Sex: Male

DRUGS (1)
  1. OZEMPIC [Suspect]
     Active Substance: SEMAGLUTIDE
     Indication: Diabetes mellitus
     Dosage: 0.25 MG
     Route: 058

REACTIONS (7)
  - Vomiting [Unknown]
  - Nausea [Unknown]
  - Accidental overdose [Unknown]
  - Asthenia [Unknown]
  - Tremor [Unknown]
  - Feeling jittery [Unknown]
  - Diarrhoea [Unknown]
